FAERS Safety Report 21137696 (Version 1)
Quarter: 2022Q3

REPORT INFORMATION
  Report Type: Spontaneous
  Country: US (occurrence: US)
  Receive Date: 20220727
  Receipt Date: 20220727
  Transmission Date: 20221026
  Serious: No
  Sender: FDA-Public Use
  Company Number: US-VELOXIS PHARMACEUTICALS-2022VELUS-000292

PATIENT
  Sex: Male

DRUGS (3)
  1. ENVARSUS XR [Suspect]
     Active Substance: TACROLIMUS
     Indication: Prophylaxis against transplant rejection
     Dosage: 24 MILLIGRAM
  2. ENVARSUS XR [Suspect]
     Active Substance: TACROLIMUS
     Dosage: 15 MILLIGRAM, QD (STRENGTH 1 MG)
  3. ENVARSUS XR [Suspect]
     Active Substance: TACROLIMUS
     Dosage: 15 MILLIGRAM, QD (STRENGTH 4 MG)

REACTIONS (1)
  - Immunosuppressant drug level increased [Not Recovered/Not Resolved]
